FAERS Safety Report 7578041-5 (Version None)
Quarter: 2011Q2

REPORT INFORMATION
  Report Type: 
  Country: None (occurrence: None)
  Receive Date: 20110628
  Receipt Date: 20110621
  Transmission Date: 20111010
  Serious: Yes (Other)
  Sender: FDA-Public Use
  Company Number: US-PFIZER INC-2011071653

PATIENT
  Sex: Female

DRUGS (6)
  1. QUININE SULFATE [Concomitant]
     Dosage: UNK
  2. TOVIAZ [Suspect]
     Dosage: 8 MG, DAILY
     Dates: start: 20110221
  3. TAPENTADOL [Concomitant]
     Dosage: UNK
  4. XANAX [Concomitant]
     Dosage: UNK
  5. GLUCOPHAGE [Concomitant]
     Dosage: UNK
  6. LANREOTIDE [Concomitant]
     Dosage: 120 MG, UNK

REACTIONS (2)
  - BLINDNESS [None]
  - VISION BLURRED [None]
